FAERS Safety Report 6069887-3 (Version None)
Quarter: 2009Q1

REPORT INFORMATION
  Report Type: 
  Country: None (occurrence: None)
  Receive Date: 20090209
  Receipt Date: 20090108
  Transmission Date: 20090719
  Serious: No
  Sender: FDA-Public Use
  Company Number: US-BAYER-200839982NA

PATIENT
  Age: 28 Year
  Sex: Female

DRUGS (1)
  1. YAZ [Suspect]
     Indication: CONTRACEPTION
     Route: 048
     Dates: start: 20081012

REACTIONS (6)
  - ABNORMAL WITHDRAWAL BLEEDING [None]
  - FATIGUE [None]
  - INCREASED APPETITE [None]
  - NAUSEA [None]
  - NO ADVERSE EVENT [None]
  - TREMOR [None]
